FAERS Safety Report 12077502 (Version 1)
Quarter: 2016Q1

REPORT INFORMATION
  Report Type: Spontaneous
  Country: US (occurrence: US)
  Receive Date: 20160215
  Receipt Date: 20160215
  Transmission Date: 20160526
  Serious: No
  Sender: FDA-Public Use
  Company Number: US-BIOGEN-2016BI00183666

PATIENT
  Age: 62 Year
  Sex: Female

DRUGS (1)
  1. AVONEX [Suspect]
     Active Substance: INTERFERON BETA-1A
     Indication: MULTIPLE SCLEROSIS
     Route: 065
     Dates: start: 20041113

REACTIONS (2)
  - Haemorrhage [Unknown]
  - Injury associated with device [Unknown]

NARRATIVE: CASE EVENT DATE: 20160128
